FAERS Safety Report 7975717-2 (Version None)
Quarter: 2011Q4

REPORT INFORMATION
  Report Type: 
  Country: None (occurrence: None)
  Receive Date: 20111213
  Receipt Date: 20110920
  Transmission Date: 20120403
  Serious: No
  Sender: FDA-Public Use
  Company Number: US-AMGEN-USASP2011048611

PATIENT
  Age: 48 Year
  Sex: Female

DRUGS (1)
  1. ENBREL [Suspect]
     Indication: RHEUMATOID ARTHRITIS
     Dosage: UNK
     Dates: start: 20110616

REACTIONS (5)
  - WEIGHT LOSS POOR [None]
  - WEIGHT INCREASED [None]
  - NAUSEA [None]
  - SINUS CONGESTION [None]
  - FATIGUE [None]
